FAERS Safety Report 5839394-9 (Version None)
Quarter: 2008Q3

REPORT INFORMATION
  Report Type: 
  Country: None (occurrence: None)
  Receive Date: 20080806
  Receipt Date: 20080721
  Transmission Date: 20090109
  Serious: Yes (Hospitalization, Other)
  Sender: FDA-Public Use
  Company Number: CAPT20080001

PATIENT
  Age: 76 Year
  Sex: Male

DRUGS (8)
  1. CAPTOPRIL [Suspect]
     Dosage: 50 MG, PER DAY
     Dates: end: 20080411
  2. ECAZIDE          (CAPTOPRIL AND HYDROCHLOROTHIAZIDE) [Suspect]
     Dates: start: 20080325, end: 20080413
  3. ROCEPHIN [Suspect]
     Indication: CHOLECYSTITIS
     Dosage: 1 GM, PER DAY, INTRAVENOUS
     Route: 042
     Dates: start: 20080411, end: 20080413
  4. FENOFIBRATE [Concomitant]
  5. CORDARONE [Concomitant]
  6. SOTALOL HCL [Concomitant]
  7. METFORMIN HCL [Concomitant]
  8. PREVISCAN (FLUINDIONE) [Concomitant]

REACTIONS (4)
  - CHOLECYSTITIS [None]
  - CHOLELITHIASIS [None]
  - RENAL FAILURE ACUTE [None]
  - SPLENIC CYST [None]
